FAERS Safety Report 23262196 (Version 1)
Quarter: 2023Q4

REPORT INFORMATION
  Report Type: Spontaneous
  Country: US (occurrence: None)
  Receive Date: 20231204
  Receipt Date: 20231204
  Transmission Date: 20240109
  Serious: Yes (Hospitalization)
  Sender: FDA-Public Use
  Company Number: None

PATIENT
  Age: 55 Year
  Sex: Female
  Weight: 106 kg

DRUGS (1)
  1. CHLORTHALIDONE [Suspect]
     Active Substance: CHLORTHALIDONE
     Dosage: 12.5 MG EVERY DAY PO
     Route: 048
     Dates: start: 20210712, end: 20230814

REACTIONS (5)
  - Haemolytic anaemia [None]
  - Thrombocytopenia [None]
  - Abdominal discomfort [None]
  - Pyrexia [None]
  - Immune thrombocytopenia [None]

NARRATIVE: CASE EVENT DATE: 20200812
